FAERS Safety Report 18953465 (Version 1)
Quarter: 2021Q1

REPORT INFORMATION
  Report Type: Spontaneous
  Country: US (occurrence: US)
  Receive Date: 20210301
  Receipt Date: 20210301
  Transmission Date: 20210420
  Serious: No
  Sender: FDA-Public Use
  Company Number: None

PATIENT
  Age: 24 Year
  Sex: Female
  Weight: 105.75 kg

DRUGS (1)
  1. PHEXXI [Suspect]
     Active Substance: CITRIC ACID MONOHYDRATE\LACTIC ACID, L-\POTASSIUM BITARTRATE
     Indication: CONTRACEPTION
     Dosage: ?          QUANTITY:1 APPLICATOR;?
     Route: 067
     Dates: start: 20210226, end: 20210226

REACTIONS (6)
  - Infection [None]
  - Micturition urgency [None]
  - Urethritis noninfective [None]
  - Vaginal discharge [None]
  - Vulvovaginal burning sensation [None]
  - Vaginal haemorrhage [None]

NARRATIVE: CASE EVENT DATE: 20210226
